FAERS Safety Report 21586799 (Version 3)
Quarter: 2022Q4

REPORT INFORMATION
  Report Type: Spontaneous
  Country: US (occurrence: None)
  Receive Date: 20221113
  Receipt Date: 20221129
  Transmission Date: 20230113
  Serious: Yes (Other)
  Sender: FDA-Public Use
  Company Number: US-ROCHE-3216643

PATIENT
  Sex: Female

DRUGS (2)
  1. AVASTIN [Suspect]
     Active Substance: BEVACIZUMAB
     Indication: Retinal vein occlusion
     Route: 050
     Dates: start: 20220408
  2. AVASTIN [Suspect]
     Active Substance: BEVACIZUMAB
     Indication: Macular oedema

REACTIONS (3)
  - Off label use [Unknown]
  - Loss of consciousness [Unknown]
  - Syncope [Unknown]
